FAERS Safety Report 5887853-5 (Version None)
Quarter: 2008Q3

REPORT INFORMATION
  Report Type: 
  Country: None (occurrence: None)
  Receive Date: 20080918
  Receipt Date: 20080917
  Transmission Date: 20090109
  Serious: Yes (Other)
  Sender: FDA-Public Use
  Company Number: JP-BRISTOL-MYERS SQUIBB COMPANY-14328637

PATIENT
  Age: 31 Year
  Sex: Male

DRUGS (5)
  1. BRIPLATIN [Suspect]
     Indication: TESTIS CANCER
     Route: 041
  2. PARAPLATIN [Suspect]
     Indication: TESTIS CANCER
     Route: 041
  3. VEPESID [Suspect]
     Indication: TESTIS CANCER
     Dosage: 1600~2400MG/M2,1/1DAY,4D
     Route: 041
  4. IFOMIDE [Suspect]
     Indication: TESTIS CANCER
     Dosage: 6000~10000MG/M2,1/1DAY,DURATION 4 DAYS
     Route: 041
  5. BLEOMYCIN SULFATE [Suspect]
     Indication: TESTIS CANCER

REACTIONS (2)
  - ANGINA PECTORIS [None]
  - HYPERTENSION [None]
